FAERS Safety Report 18889339 (Version 1)
Quarter: 2021Q1

REPORT INFORMATION
  Report Type: Spontaneous
  Country: US (occurrence: US)
  Receive Date: 20210213
  Receipt Date: 20210213
  Transmission Date: 20210420
  Serious: No
  Sender: FDA-Public Use
  Company Number: US-SA-2021SA044407

PATIENT
  Age: 49 Year
  Sex: Female

DRUGS (19)
  1. TETRACYCLINE [Concomitant]
     Active Substance: TETRACYCLINE
  2. CETIRIZINE [Concomitant]
     Active Substance: CETIRIZINE HYDROCHLORIDE
  3. DUPIXENT [Suspect]
     Active Substance: DUPILUMAB
     Indication: ASTHMA
     Dosage: 300 MG, QOW
     Route: 058
  4. MUCINEX [Concomitant]
     Active Substance: GUAIFENESIN
  5. PREDNISONE. [Concomitant]
     Active Substance: PREDNISONE
  6. PROAIR HFA [Concomitant]
     Active Substance: ALBUTEROL SULFATE
  7. ZYRTEC [Concomitant]
     Active Substance: CETIRIZINE HYDROCHLORIDE
  8. VITAMIN D3 [Concomitant]
     Active Substance: CHOLECALCIFEROL
  9. EPINEPHRINE. [Concomitant]
     Active Substance: EPINEPHRINE
  10. FLUTICASONE. [Concomitant]
     Active Substance: FLUTICASONE
  11. SPIRIVA [Concomitant]
     Active Substance: TIOTROPIUM BROMIDE MONOHYDRATE
  12. MONTELUKAST [Concomitant]
     Active Substance: MONTELUKAST SODIUM
  13. SYMBICORT [Concomitant]
     Active Substance: BUDESONIDE\FORMOTEROL FUMARATE DIHYDRATE
  14. XHANCE [Concomitant]
     Active Substance: FLUTICASONE PROPIONATE
  15. ALBUTEROL [SALBUTAMOL] [Concomitant]
     Active Substance: ALBUTEROL
  16. ELIQUIS [Concomitant]
     Active Substance: APIXABAN
  17. LISINOPRIL. [Concomitant]
     Active Substance: LISINOPRIL
  18. OMEPRAZOLE. [Concomitant]
     Active Substance: OMEPRAZOLE
  19. AUGMENTIN [Concomitant]
     Active Substance: AMOXICILLIN\CLAVULANATE POTASSIUM

REACTIONS (1)
  - Eye pain [Unknown]

NARRATIVE: CASE EVENT DATE: 20201201
